FAERS Safety Report 25917127 (Version 1)
Quarter: 2025Q4

REPORT INFORMATION
  Report Type: Spontaneous
  Country: US (occurrence: US)
  Receive Date: 20251014
  Receipt Date: 20251014
  Transmission Date: 20260117
  Serious: Yes (Hospitalization, Other)
  Sender: ALKEM
  Company Number: US-ALKEM LABORATORIES LIMITED-US-ALKEM-2025-10593

PATIENT
  Age: 61 Year
  Sex: Male

DRUGS (3)
  1. GABAPENTIN [Suspect]
     Active Substance: GABAPENTIN
     Indication: Product used for unknown indication
     Dosage: UNK (HIGH DOSES)
     Route: 065
  2. GABAPENTIN [Suspect]
     Active Substance: GABAPENTIN
     Dosage: UNK (REINITIATED DOSE)
     Route: 065
  3. OXYCODONE [Concomitant]
     Active Substance: OXYCODONE
     Indication: Product used for unknown indication
     Dosage: UNK (HIGH DOSES)
     Route: 065

REACTIONS (10)
  - Hyperhidrosis [Unknown]
  - Myalgia [Unknown]
  - Blood pressure increased [Unknown]
  - Withdrawal syndrome [Unknown]
  - Confusional state [Recovered/Resolved]
  - Drug withdrawal convulsions [Unknown]
  - Nausea [Unknown]
  - Vomiting [Unknown]
  - Tremor [Unknown]
  - Restlessness [Recovered/Resolved]
